FAERS Safety Report 6188128-X (Version None)
Quarter: 2009Q2

REPORT INFORMATION
  Report Type: 
  Country: None (occurrence: None)
  Receive Date: 20090513
  Receipt Date: 20071003
  Transmission Date: 20091009
  Serious: No
  Sender: FDA-Public Use
  Company Number: A0721222A

PATIENT
  Age: 75 Year
  Sex: Female

DRUGS (4)
  1. DYNACIRC CR [Suspect]
     Indication: HYPERTENSION
     Dosage: 10MG PER DAY
     Route: 048
     Dates: start: 20070801
  2. CATAPRES [Suspect]
     Indication: HYPERTENSION
     Dates: start: 20070726, end: 20071101
  3. GINKO BILOBA [Suspect]
     Indication: DRUG USE FOR UNKNOWN INDICATION
     Dates: start: 20070801
  4. LASIX [Concomitant]
     Indication: DRUG USE FOR UNKNOWN INDICATION

REACTIONS (4)
  - ANXIETY [None]
  - CONDITION AGGRAVATED [None]
  - DRUG INEFFECTIVE [None]
  - DRUG INTERACTION [None]
